FAERS Safety Report 6569294-0 (Version None)
Quarter: 2010Q1

REPORT INFORMATION
  Report Type: 
  Country: None (occurrence: None)
  Receive Date: 20100201
  Receipt Date: 20100201
  Transmission Date: 20100710
  Serious: Yes (Life-Threatening, Hospitalization)
  Sender: FDA-Public Use
  Company Number: None

PATIENT
  Age: 17 Month
  Sex: Male
  Weight: 10 kg

DRUGS (1)
  1. PROPRANOLOL [Suspect]
     Indication: SUPRAVENTRICULAR TACHYCARDIA
     Dosage: 2.5 ML TID P.O.
     Route: 048
     Dates: start: 20090410, end: 20091214

REACTIONS (4)
  - BRADYCARDIA [None]
  - HYPOGLYCAEMIA [None]
  - HYPOTHERMIA [None]
  - SOMNOLENCE [None]
